FAERS Safety Report 10523435 (Version 2)
Quarter: 2015Q1

REPORT INFORMATION
  Report Type: Report from Study
  Country: BR (occurrence: BR)
  Receive Date: 20141016
  Receipt Date: 20150219
  Transmission Date: 20150720
  Serious: Yes (Other)
  Sender: FDA-Public Use
  Company Number: PHHY2014BR133398

PATIENT
  Age: 55 Year
  Sex: Female
  Weight: 70 kg

DRUGS (3)
  1. SANDOSTATIN LAR DEPOT [Suspect]
     Active Substance: OCTREOTIDE ACETATE
     Dosage: 2 DF (20 MG), EACH 28 DAYS
     Route: 065
  2. SANDOSTATIN LAR DEPOT [Suspect]
     Active Substance: OCTREOTIDE ACETATE
     Indication: NEUROENDOCRINE TUMOUR
     Dosage: 1 DF (30 MG), EACH 30 DAYS
     Route: 065
     Dates: start: 201309
  3. SANDOSTATIN LAR DEPOT [Suspect]
     Active Substance: OCTREOTIDE ACETATE
     Indication: HEPATIC NEOPLASM
     Dosage: 2 DF (20 MG), EACH 30 DAYS
     Route: 065
     Dates: start: 20141008

REACTIONS (5)
  - Fatigue [Not Recovered/Not Resolved]
  - Nausea [Not Recovered/Not Resolved]
  - Product use issue [Unknown]
  - Abdominal discomfort [Not Recovered/Not Resolved]
  - Neuroendocrine breast tumour [Unknown]

NARRATIVE: CASE EVENT DATE: 201309
